FAERS Safety Report 17438384 (Version 2)
Quarter: 2020Q1

REPORT INFORMATION
  Report Type: Report from Study
  Country: GB (occurrence: GB)
  Receive Date: 20200220
  Receipt Date: 20200306
  Transmission Date: 20200409
  Serious: Yes (Other)
  Sender: FDA-Public Use
  Company Number: GB-SAMSUNG BIOEPIS-SB-2020-04404

PATIENT
  Age: 29 Year
  Sex: Female

DRUGS (1)
  1. IMRALDI [Suspect]
     Active Substance: ADALIMUMAB
     Indication: BEHCET^S SYNDROME
     Route: 058
     Dates: start: 20191018

REACTIONS (7)
  - Influenza like illness [Unknown]
  - Herpes zoster [Recovered/Resolved]
  - Immunosuppression [Unknown]
  - Product use in unapproved indication [Unknown]
  - Stress at work [Unknown]
  - Malaise [Unknown]
  - Skin infection [Not Recovered/Not Resolved]

NARRATIVE: CASE EVENT DATE: 20200125
